FAERS Safety Report 6498562-6 (Version None)
Quarter: 2009Q4

REPORT INFORMATION
  Report Type: 
  Country: None (occurrence: None)
  Receive Date: 20091127
  Receipt Date: 20090508
  Transmission Date: 20100525
  Serious: Yes (Hospitalization)
  Sender: FDA-Public Use
  Company Number: 283695

PATIENT
  Age: 63 Year
  Sex: Female
  Weight: 121.5 kg

DRUGS (11)
  1. NOVOLOG [Suspect]
     Indication: TYPE 2 DIABETES MELLITUS
     Dosage: 20, 20, 25 U, TID AC, SUBCUTANEOUS
     Route: 058
  2. LANTUS [Suspect]
     Indication: TYPE 2 DIABETES MELLITUS
     Dosage: 40 U, QD AT BEDTIME, SUBCUTANEOUS
     Route: 058
     Dates: start: 20050101
  3. DIOVAN [Concomitant]
  4. AMBIEN CR [Concomitant]
  5. ATENOLOL [Concomitant]
  6. ZOCOR [Concomitant]
  7. IMDUR [Concomitant]
  8. ALLOPURINOL [Concomitant]
  9. DRISDOL [Concomitant]
  10. ASPIRIN [Concomitant]
  11. NORVASC [Concomitant]

REACTIONS (3)
  - BLOOD GLUCOSE DECREASED [None]
  - BLOOD GLUCOSE INCREASED [None]
  - INTENTIONAL DRUG MISUSE [None]
